FAERS Safety Report 4359556-X (Version None)
Quarter: 2004Q2

REPORT INFORMATION
  Report Type: 
  Country: None (occurrence: None)
  Receive Date: 20040513
  Receipt Date: 20040430
  Transmission Date: 20050107
  Serious: Yes (Hospitalization, Other)
  Sender: FDA-Public Use
  Company Number: 2004029732

PATIENT
  Sex: Male
  Weight: 92.9874 kg

DRUGS (1)
  1. NORVASC [Suspect]
     Indication: HYPERTENSION
     Dosage: 10 MG (DAILY), ORAL
     Route: 048

REACTIONS (3)
  - BODY TEMPERATURE INCREASED [None]
  - FUNGAL RASH [None]
  - HYPERHIDROSIS [None]
